FAERS Safety Report 9928273 (Version 3)
Quarter: 2014Q2

REPORT INFORMATION
  Report Type: Spontaneous
  Country: IT (occurrence: IT)
  Receive Date: 20140227
  Receipt Date: 20140627
  Transmission Date: 20141212
  Serious: Yes (Other)
  Sender: FDA-Public Use
  Company Number: IT-ROCHE-1352750

PATIENT
  Age: 63 Year
  Sex: Female

DRUGS (7)
  1. ROCEFIN [Suspect]
     Indication: BRONCHITIS
     Route: 030
     Dates: start: 20140107, end: 20140108
  2. ROCEFIN [Suspect]
     Route: 065
     Dates: start: 20130101
  3. FOSICOMBI [Concomitant]
     Indication: HYPERTENSION
     Dosage: TAB 20MG + 12.5 MG
     Route: 048
     Dates: start: 20131001, end: 20140110
  4. NORVASC [Concomitant]
     Indication: HYPERTENSION
     Route: 048
     Dates: start: 20140110
  5. TORVAST [Concomitant]
     Indication: DYSLIPIDAEMIA
     Route: 048
     Dates: start: 20140110
  6. TACHIPIRINA [Concomitant]
     Route: 048
  7. ASPIRINA [Concomitant]
     Route: 048

REACTIONS (4)
  - Angioedema [Recovered/Resolved]
  - Choking sensation [Recovering/Resolving]
  - Pruritus [Recovering/Resolving]
  - Urticaria [Recovering/Resolving]
